FAERS Safety Report 16930853 (Version 1)
Quarter: 2019Q4

REPORT INFORMATION
  Report Type: Spontaneous
  Country: US (occurrence: US)
  Receive Date: 20191017
  Receipt Date: 20191017
  Transmission Date: 20200122
  Serious: Yes (Other)
  Sender: FDA-Public Use
  Company Number: None

PATIENT
  Age: 59 Year
  Sex: Female
  Weight: 70.65 kg

DRUGS (6)
  1. Q10 [Concomitant]
  2. B1 [Concomitant]
  3. COUMADIN [Suspect]
     Active Substance: WARFARIN SODIUM
  4. VITAMIN D3 [Concomitant]
     Active Substance: CHOLECALCIFEROL
  5. REPATHA [Suspect]
     Active Substance: EVOLOCUMAB
  6. TOPROL XL [Concomitant]
     Active Substance: METOPROLOL SUCCINATE

REACTIONS (4)
  - International normalised ratio decreased [None]
  - Haemorrhage [None]
  - Confusional state [None]
  - False positive investigation result [None]
